FAERS Safety Report 20846574 (Version 1)
Quarter: 2022Q2

REPORT INFORMATION
  Report Type: Spontaneous
  Country: FR (occurrence: FR)
  Receive Date: 20220518
  Receipt Date: 20220518
  Transmission Date: 20220721
  Serious: Yes (Life-Threatening, Hospitalization)
  Sender: FDA-Public Use
  Company Number: FR-AFSSAPS-NT20221648

PATIENT
  Age: 74 Year
  Sex: Female
  Weight: 73 kg

DRUGS (6)
  1. VALACYCLOVIR [Suspect]
     Active Substance: VALACYCLOVIR HYDROCHLORIDE
     Indication: Oral herpes
     Dosage: 4 GRAM, DAILY, 2G 2X/J
     Route: 048
     Dates: start: 20220415, end: 20220417
  2. RAMIPRIL [Concomitant]
     Active Substance: RAMIPRIL
     Indication: Hypertension
     Dosage: 1 DOSAGE FORM, DAILY
     Route: 048
     Dates: end: 20220417
  3. NOVATREX 2.5 mg, tablet [Concomitant]
     Indication: Rheumatoid arthritis
     Dosage: 7 DOSAGE FORM, WEEKLY
     Route: 048
     Dates: end: 20220417
  4. METFORMIN HYDROCHLORIDE [Concomitant]
     Active Substance: METFORMIN HYDROCHLORIDE
     Indication: Diabetes mellitus
     Dosage: 2 DOSAGE FORM, DAILY, 1 MORNING AND 1 EVENING
     Route: 048
     Dates: end: 20220417
  5. FUROSEMIDE [Concomitant]
     Active Substance: FUROSEMIDE
     Indication: Hypertension
     Dosage: 2 DOSAGE FORM, DAILY
     Route: 048
     Dates: end: 20220417
  6. ACYCLOVIR [Concomitant]
     Active Substance: ACYCLOVIR
     Indication: Herpes simplex
     Dosage: 2.5 MG/KG /J ()
     Route: 041
     Dates: start: 20220420, end: 20220423

REACTIONS (3)
  - Hallucination, visual [Recovered/Resolved]
  - Acute kidney injury [Recovering/Resolving]
  - Agranulocytosis [Not Recovered/Not Resolved]

NARRATIVE: CASE EVENT DATE: 20220417
